FAERS Safety Report 8156397-2 (Version None)
Quarter: 2012Q1

REPORT INFORMATION
  Report Type: 
  Country: None (occurrence: None)
  Receive Date: 20120222
  Receipt Date: 20120217
  Transmission Date: 20120608
  Serious: Yes (Death)
  Sender: FDA-Public Use
  Company Number: JP-SANOFI-AVENTIS-2011SA085598

PATIENT
  Age: 93 Year
  Sex: Male
  Weight: 70 kg

DRUGS (9)
  1. ASPIRIN [Suspect]
     Route: 048
     Dates: end: 20090717
  2. RABEPRAZOLE SODIUM [Concomitant]
     Route: 048
     Dates: start: 20090714, end: 20090717
  3. CLOPIDOGREL BISULFATE [Suspect]
     Dosage: LOADING DOSE
     Route: 065
     Dates: start: 20090714, end: 20090714
  4. CLOPIDOGREL BISULFATE [Suspect]
     Indication: AORTIC DISSECTION
     Dosage: LOADING DOSE
     Route: 065
     Dates: start: 20090714, end: 20090714
  5. CLOPIDOGREL BISULFATE [Suspect]
     Route: 065
     Dates: start: 20090715, end: 20090716
  6. ALL OTHER THERAPEUTIC PRODUCTS [Concomitant]
     Route: 048
     Dates: start: 20090715, end: 20090715
  7. HEPARIN [Suspect]
     Dosage: DOSE:10000 UNIT(S)
     Route: 042
     Dates: start: 20090714, end: 20090717
  8. CLOPIDOGREL BISULFATE [Suspect]
     Route: 065
     Dates: start: 20090715, end: 20090716
  9. SIGMART [Concomitant]
     Dates: start: 20090714, end: 20090717

REACTIONS (1)
  - AORTIC DISSECTION [None]
